FAERS Safety Report 8567683-6 (Version None)
Quarter: 2012Q3

REPORT INFORMATION
  Report Type: 
  Country: None (occurrence: None)
  Receive Date: 20120803
  Receipt Date: 20120723
  Transmission Date: 20120928
  Serious: Yes (Death, Hospitalization, Other)
  Sender: FDA-Public Use
  Company Number: IE-ELI_LILLY_AND_COMPANY-IE201207007808

PATIENT
  Age: 57 Year
  Sex: Female

DRUGS (2)
  1. DULOXETINE HYDROCHLORIDE [Suspect]
     Indication: DEPRESSION
     Dosage: UNK
  2. AMITRIPTYLINE HCL [Concomitant]
     Dosage: UNK

REACTIONS (7)
  - ENCEPHALOPATHY [None]
  - MULTI-ORGAN FAILURE [None]
  - DRUG INTERACTION [None]
  - RHABDOMYOLYSIS [None]
  - PNEUMONIA [None]
  - SEROTONIN SYNDROME [None]
  - DISSEMINATED INTRAVASCULAR COAGULATION [None]
